FAERS Safety Report 7646304-0 (Version None)
Quarter: 2011Q3

REPORT INFORMATION
  Report Type: 
  Country: None (occurrence: None)
  Receive Date: 20110801
  Receipt Date: 20100112
  Transmission Date: 20111222
  Serious: No
  Sender: FDA-Public Use
  Company Number: 2010BI001445

PATIENT
  Sex: Female

DRUGS (1)
  1. TYSABRI [Suspect]
     Indication: MULTIPLE SCLEROSIS
     Route: 042
     Dates: start: 20071114

REACTIONS (8)
  - FATIGUE [None]
  - TREMOR [None]
  - GAIT DISTURBANCE [None]
  - PAIN IN JAW [None]
  - ASTHENIA [None]
  - PAIN IN EXTREMITY [None]
  - MOBILITY DECREASED [None]
  - DYSSTASIA [None]
